FAERS Safety Report 19588904 (Version 2)
Quarter: 2023Q4

REPORT INFORMATION
  Report Type: Other
  Country: US (occurrence: None)
  Receive Date: 20210721
  Receipt Date: 20231009
  Transmission Date: 20240110
  Serious: Yes (Other)
  Sender: FDA-Public Use
  Company Number: US-ROCHE-2871998

PATIENT
  Age: 73 Year
  Sex: Female

DRUGS (13)
  1. ACTEMRA [Suspect]
     Active Substance: TOCILIZUMAB
     Indication: Autoimmune disorder
     Dosage: STRENGTH: 162 MG/0.9 ML
     Route: 058
  2. ACTEMRA [Suspect]
     Active Substance: TOCILIZUMAB
  3. ACTEMRA [Suspect]
     Active Substance: TOCILIZUMAB
     Indication: Giant cell arteritis
  4. ACTEMRA [Suspect]
     Active Substance: TOCILIZUMAB
  5. ACETAMINOPHEN [Concomitant]
     Active Substance: ACETAMINOPHEN
  6. BIOTIN [Concomitant]
     Active Substance: BIOTIN
  7. MISOPROSTOL [Concomitant]
     Active Substance: MISOPROSTOL
  8. CLOBETASOL [Concomitant]
     Active Substance: CLOBETASOL
  9. METOPROLOL TARTRATE [Concomitant]
     Active Substance: METOPROLOL TARTRATE
  10. LOSARTAN [Concomitant]
     Active Substance: LOSARTAN
  11. ESTRADIOL [Concomitant]
     Active Substance: ESTRADIOL
  12. FAMOTIDINE [Concomitant]
     Active Substance: FAMOTIDINE
  13. CALCIUM [Concomitant]
     Active Substance: CALCIUM

REACTIONS (14)
  - Visual impairment [Unknown]
  - Blindness unilateral [Unknown]
  - Neck pain [Unknown]
  - Arthralgia [Unknown]
  - Fatigue [Unknown]
  - Full blood count abnormal [Unknown]
  - Back pain [Unknown]
  - Headache [Unknown]
  - Osteoporosis [Unknown]
  - Blood pressure increased [Unknown]
  - Gait disturbance [Unknown]
  - Insomnia [Unknown]
  - Anxiety [Unknown]
  - Hypoaesthesia [Unknown]
